FAERS Safety Report 19813788 (Version 1)
Quarter: 2021Q3

REPORT INFORMATION
  Report Type: Spontaneous
  Country: DE (occurrence: DE)
  Receive Date: 20210909
  Receipt Date: 20210909
  Transmission Date: 20211014
  Serious: Yes (Other)
  Sender: FDA-Public Use
  Company Number: DE-MYLANLABS-2021M1060111

PATIENT
  Age: 91 Year
  Sex: Female
  Weight: 60 kg

DRUGS (2)
  1. ISOKET [Concomitant]
     Active Substance: ISOSORBIDE DINITRATE
     Indication: CORONARY ARTERY DISEASE
     Dosage: 20 MILLIGRAM, QD ((0?0?1) (FORMULATION: SUSTAINED RELEASE))
     Route: 048
     Dates: start: 20060426
  2. RAMIPRIL. [Suspect]
     Active Substance: RAMIPRIL
     Indication: HYPERTENSION
     Dosage: 5 MILLIGRAM, QD
     Route: 048
     Dates: start: 20070721, end: 20160906

REACTIONS (5)
  - Orthopnoea [Unknown]
  - Cardiac failure [Unknown]
  - Dyspnoea [Recovering/Resolving]
  - Ejection fraction decreased [Unknown]
  - Left ventricular failure [Unknown]

NARRATIVE: CASE EVENT DATE: 20141006
